FAERS Safety Report 11825510 (Version 1)
Quarter: 2015Q4

REPORT INFORMATION
  Report Type: Spontaneous
  Country: GB (occurrence: GB)
  Receive Date: 20151211
  Receipt Date: 20151211
  Transmission Date: 20160305
  Serious: Yes (Life-Threatening, Hospitalization)
  Sender: FDA-Public Use
  Company Number: GB-TEVA-614947ACC

PATIENT
  Age: 71 Year
  Sex: Male

DRUGS (24)
  1. GLICLAZIDE [Concomitant]
     Active Substance: GLICLAZIDE
     Dosage: 40 MILLIGRAM DAILY; 40 MILLIGRAMS IN THE MORNING
  2. ARTIFICIAL SALIVA [Concomitant]
     Dosage: AS DIRECTED
  3. CIPROFLOXACIN. [Concomitant]
     Active Substance: CIPROFLOXACIN
     Dosage: FOR 12 DAYS 9-20 OF CYCLE
     Dates: start: 20150926, end: 20151007
  4. METFORMIN [Concomitant]
     Active Substance: METFORMIN HYDROCHLORIDE
     Dosage: 2 GRAM DAILY;
  5. MAGNESIUM GLYCEROPHOSPHATE [Concomitant]
     Active Substance: MAGNESIUM GLYCEROPHOSPHATE
     Dosage: 4 MILLIMOL DAILY; 4MILLIMOL IN THE MORNING, PATIENT NOT TAKING IT
     Dates: start: 20150824
  6. SALBUTAMOL [Concomitant]
     Active Substance: ALBUTEROL
     Dosage: PATIENT DOESN^T REALLY USE IT
     Route: 055
     Dates: start: 20150824
  7. ADCAL-D3 [Concomitant]
     Active Substance: CALCIUM CARBONATE\CHOLECALCIFEROL
     Dosage: 2 DOSAGE FORMS DAILY;
     Dates: start: 20150824
  8. BISOPROLOL [Concomitant]
     Active Substance: BISOPROLOL
     Dosage: 10 MILLIGRAM DAILY;
  9. ENOXAPARIN [Concomitant]
     Active Substance: ENOXAPARIN
     Indication: ATRIAL FIBRILLATION
     Dosage: 1 DOSAGE FORMS DAILY; 120MG/0.8ML PRE FILLED SYRINGE, DAILY DOSE: 1 DOSAGE FORM
     Route: 058
  10. ALLOPURINOL. [Concomitant]
     Active Substance: ALLOPURINOL
     Dosage: 200 MILLIGRAM DAILY;
  11. DEXAMETHASONE. [Concomitant]
     Active Substance: DEXAMETHASONE
     Dosage: THREE DAYS POST CHEMO.
  12. DIGOXIN. [Concomitant]
     Active Substance: DIGOXIN
     Dosage: 125 MICROGRAM DAILY;
  13. MAGNESIUM ASPARTATE [Concomitant]
     Active Substance: MAGNESIUM ASPARTATE
     Dosage: 20 MILLIMOL DAILY; TABLETS PRESCRIBED PATIENT USING SACHETS-INCREASED, DAILY DOSE: 20MILLIMOL
     Route: 048
  14. ETOPOSIDE. [Suspect]
     Active Substance: ETOPOSIDE
     Indication: LARGE CELL LUNG CANCER
     Dosage: 180MG ON DAY 1 OF CHEMOTHERAPY, 200MG BD ON DAYS 2-3
     Dates: start: 20150824
  15. DEXAMETHASONE. [Concomitant]
     Active Substance: DEXAMETHASONE
     Dosage: 2 MILLIGRAM DAILY;
     Dates: start: 20150918
  16. FUROSEMIDE. [Concomitant]
     Active Substance: FUROSEMIDE
     Dosage: 40 MILLIGRAM DAILY; 40 MILLIGRAMS IN THE MORNING
  17. OXYBUTYNIN [Concomitant]
     Active Substance: OXYBUTYNIN
     Dosage: 10 MILLIGRAM DAILY; 10 MILLIGRAMS IN THE MORNING
  18. SIMVASTATIN. [Concomitant]
     Active Substance: SIMVASTATIN
     Dosage: 40 MILLIGRAM DAILY; 40 MILLIGRAM AT NIGHT
  19. CARBOPLATIN. [Suspect]
     Active Substance: CARBOPLATIN
     Indication: LARGE CELL LUNG CANCER
     Dosage: 400 MILLIGRAM DAILY; 400 MILLIGRAM ON DAY 1
     Route: 042
     Dates: start: 20150824
  20. SAXAGLIPTIN [Concomitant]
     Active Substance: SAXAGLIPTIN
     Dosage: 5 MILLIGRAM DAILY;
  21. TAMSULOSIN [Concomitant]
     Active Substance: TAMSULOSIN
     Dosage: 400 MICROGRAM DAILY;
  22. LIDOCAINE. [Concomitant]
     Active Substance: LIDOCAINE
     Dates: start: 20150825
  23. DOMPERIDONE [Concomitant]
     Active Substance: DOMPERIDONE
  24. NUTRITIONAL SUPPLEMENT [Concomitant]
     Active Substance: DIETARY SUPPLEMENT
     Dosage: ENSURE PLUS JUICE 1-2 ONCE A DAY WHILST UNABLE TO EAT
     Dates: start: 20150820

REACTIONS (4)
  - Urosepsis [Unknown]
  - Urinary tract infection [Unknown]
  - Pancytopenia [Recovering/Resolving]
  - Decreased appetite [Unknown]

NARRATIVE: CASE EVENT DATE: 20150930
